FAERS Safety Report 18252066 (Version 1)
Quarter: 2020Q3

REPORT INFORMATION
  Report Type: Spontaneous
  Country: US (occurrence: US)
  Receive Date: 20200910
  Receipt Date: 20200910
  Transmission Date: 20201103
  Serious: No
  Sender: FDA-Public Use
  Company Number: US-FARMAPROD-202003-0414

PATIENT
  Age: 82 Year
  Sex: Female

DRUGS (5)
  1. DOXYCYCLINE. [Concomitant]
     Active Substance: DOXYCYCLINE
     Indication: BLEPHARITIS
     Route: 048
     Dates: start: 20191025
  2. TOPICAL STEROIDS [Concomitant]
     Active Substance: UNSPECIFIED INGREDIENT
  3. OXERVATE [Suspect]
     Active Substance: CENEGERMIN-BKBJ
     Indication: KERATITIS
     Route: 047
     Dates: start: 20200312, end: 20200331
  4. VITAMINE C [Concomitant]
     Active Substance: ASCORBIC ACID
     Dates: start: 20191025
  5. VALTREX [Concomitant]
     Active Substance: VALACYCLOVIR HYDROCHLORIDE
     Indication: KERATITIS
     Route: 048
     Dates: start: 20191025

REACTIONS (2)
  - Eye infection [Recovered/Resolved with Sequelae]
  - Ocular hyperaemia [Recovering/Resolving]

NARRATIVE: CASE EVENT DATE: 20200416
